FAERS Safety Report 23841540 (Version 1)
Quarter: 2024Q2

REPORT INFORMATION
  Report Type: Report from Study
  Country: US (occurrence: US)
  Receive Date: 20240510
  Receipt Date: 20240510
  Transmission Date: 20240715
  Serious: Yes (Life-Threatening, Other)
  Sender: FDA-Public Use
  Company Number: US-AUROBINDO-AUR-APL-2024-021678

PATIENT

DRUGS (6)
  1. CYCLOPHOSPHAMIDE [Suspect]
     Active Substance: CYCLOPHOSPHAMIDE
     Indication: Drug therapy
     Dosage: UNK
     Route: 065
  2. METHOTREXATE [Suspect]
     Active Substance: METHOTREXATE
     Indication: Drug therapy
     Dosage: UNK
     Route: 065
  3. PALIFERMIN [Suspect]
     Active Substance: PALIFERMIN
     Indication: Graft versus host disease
     Dosage: UNK
     Route: 065
  4. PALIFERMIN [Suspect]
     Active Substance: PALIFERMIN
     Indication: Prophylaxis
  5. TACROLIMUS [Suspect]
     Active Substance: TACROLIMUS
     Indication: Graft versus host disease
     Dosage: UNK
     Route: 065
  6. TACROLIMUS [Suspect]
     Active Substance: TACROLIMUS
     Indication: Prophylaxis

REACTIONS (1)
  - Acute kidney injury [Unknown]
